FAERS Safety Report 17661757 (Version 1)
Quarter: 2020Q2

REPORT INFORMATION
  Report Type: Spontaneous
  Country: FR (occurrence: FR)
  Receive Date: 20200413
  Receipt Date: 20200413
  Transmission Date: 20200713
  Serious: Yes (Disabling)
  Sender: FDA-Public Use
  Company Number: FR-PFIZER INC-2020148744

PATIENT
  Age: 41 Year
  Sex: Female

DRUGS (1)
  1. SOLU-MEDROL [Suspect]
     Active Substance: METHYLPREDNISOLONE SODIUM SUCCINATE
     Indication: ACUTE DISSEMINATED ENCEPHALOMYELITIS
     Dosage: 1 G, 1X/DAY
     Route: 042
     Dates: start: 20200129, end: 20200202

REACTIONS (1)
  - Chorioretinitis [Recovering/Resolving]

NARRATIVE: CASE EVENT DATE: 20200205
